FAERS Safety Report 8179845-0 (Version None)
Quarter: 2012Q1

REPORT INFORMATION
  Report Type: 
  Country: None (occurrence: None)
  Receive Date: 20120229
  Receipt Date: 20120215
  Transmission Date: 20120608
  Serious: Yes (Hospitalization)
  Sender: FDA-Public Use
  Company Number: UTC-015681

PATIENT
  Age: 78 Year
  Sex: Male
  Weight: 59.09 kg

DRUGS (7)
  1. PREDNISONE (PREDNISONE) (75 MILLIGRAM, TABLET) [Concomitant]
  2. TRACLEER (BOSENTAN) (75 MILLIGRAM, TABLET) [Concomitant]
  3. OXYGEN (OXYGEN) (75 MILLIGRAM, TABLET) [Concomitant]
  4. DIURETICS (DIURETICS) [Concomitant]
  5. PLAVIX (CLOPIDOGREL) (75 MILLIGRAM, TABLETS) [Concomitant]
  6. TYVASO [Suspect]
     Indication: PULMONARY ARTERIAL HYPERTENSION
     Dosage: 54-72 MICROGRAMS, INHALATION
     Route: 055
     Dates: start: 20110615, end: 20120112
  7. TYVASO [Suspect]
     Indication: PULMONARY HYPERTENSION
     Dosage: 54-72 MICROGRAMS, INHALATION
     Route: 055
     Dates: start: 20110615, end: 20120112

REACTIONS (5)
  - DYSPNOEA [None]
  - HAEMOGLOBIN DECREASED [None]
  - IRRITABILITY [None]
  - DRUG INEFFECTIVE [None]
  - POOR QUALITY SLEEP [None]
